FAERS Safety Report 25736477 (Version 1)
Quarter: 2025Q3

REPORT INFORMATION
  Report Type: Spontaneous
  Country: GB (occurrence: GB)
  Receive Date: 20250828
  Receipt Date: 20250828
  Transmission Date: 20251021
  Serious: Yes (Life-Threatening, Disabling, Other)
  Sender: JOHNSON AND JOHNSON
  Company Number: None

PATIENT
  Age: 51 Year
  Sex: Male

DRUGS (3)
  1. PALIPERIDONE [Suspect]
     Active Substance: PALIPERIDONE
     Indication: Schizophrenia
     Route: 030
     Dates: start: 20230105
  2. PALIPERIDONE [Suspect]
     Active Substance: PALIPERIDONE
  3. PALIPERIDONE [Suspect]
     Active Substance: PALIPERIDONE

REACTIONS (1)
  - Priapism [Recovered/Resolved with Sequelae]

NARRATIVE: CASE EVENT DATE: 20250723
